FAERS Safety Report 7255076-3 (Version None)
Quarter: 2011Q1

REPORT INFORMATION
  Report Type: 
  Country: None (occurrence: None)
  Receive Date: 20110129
  Receipt Date: 20100201
  Transmission Date: 20110831
  Serious: No
  Sender: FDA-Public Use
  Company Number: US-ABBOTT-10P-163-0623937-00

PATIENT
  Sex: Female
  Weight: 68.1 kg

DRUGS (3)
  1. HUMIRA [Suspect]
     Indication: SPONDYLOARTHROPATHY
     Route: 058
     Dates: start: 20091201
  2. ALEVE [Concomitant]
     Indication: SPONDYLOARTHROPATHY
  3. TYLENOL-500 [Concomitant]
     Indication: SPONDYLOARTHROPATHY

REACTIONS (2)
  - MYALGIA [None]
  - INFLUENZA LIKE ILLNESS [None]
